FAERS Safety Report 4817346-5 (Version None)
Quarter: 2005Q3

REPORT INFORMATION
  Report Type: 
  Country: None (occurrence: None)
  Receive Date: 20050929
  Receipt Date: 20050830
  Transmission Date: 20060218
  Serious: Yes (Death)
  Sender: FDA-Public Use
  Company Number: 05P-163-0306682-00

PATIENT
  Age: 75 Year
  Sex: Female
  Weight: 61.2356 kg

DRUGS (11)
  1. HUMIRA [Suspect]
     Indication: RHEUMATOID ARTHRITIS
     Dosage: 40 MG, 1 IN 2 WK, SUBCUTANEOUS
     Route: 058
     Dates: start: 20040901, end: 20050501
  2. RISEDRONATE SODIUM [Concomitant]
  3. LEVOTHYROXINE [Concomitant]
  4. CELECOXIB [Concomitant]
  5. DETROL LA [Concomitant]
  6. ASPIRIN [Concomitant]
  7. PREDNISONE [Concomitant]
  8. HYDROXYCHLOROQUINE PHOSPHATE [Concomitant]
  9. METOPROLOL [Concomitant]
  10. PAROXETINE HYDROCHLORIDE [Concomitant]
  11. DYAZIDE [Concomitant]

REACTIONS (1)
  - DEATH [None]
